FAERS Safety Report 19057020 (Version 2)
Quarter: 2021Q2

REPORT INFORMATION
  Report Type: Spontaneous
  Country: ES (occurrence: ES)
  Receive Date: 20210325
  Receipt Date: 20210412
  Transmission Date: 20210717
  Serious: Yes (Other)
  Sender: FDA-Public Use
  Company Number: NVSC2021ES067462

PATIENT
  Age: 6 Year
  Sex: Female

DRUGS (11)
  1. VINCRISTINE [Suspect]
     Active Substance: VINCRISTINE
     Indication: OSTEOSARCOMA
     Dosage: 1 MG ONE DOSE
     Route: 065
  2. VINCRISTINE [Suspect]
     Active Substance: VINCRISTINE
  3. CISPLATIN. [Suspect]
     Active Substance: CISPLATIN
     Indication: NEOADJUVANT THERAPY
     Dosage: 150 MG/M2
     Route: 013
  4. ADRIAMYCIN [Suspect]
     Active Substance: DOXORUBICIN HYDROCHLORIDE
     Indication: OSTEOSARCOMA
     Dosage: 75 MG/M2 (TWO CYCLES)
     Route: 065
  5. METHOTREXATE. [Suspect]
     Active Substance: METHOTREXATE
     Indication: NEOADJUVANT THERAPY
  6. METHOTREXATE. [Suspect]
     Active Substance: METHOTREXATE
     Indication: OSTEOSARCOMA
     Dosage: 12 G/M2 (TWO CYCLES)
     Route: 042
  7. ADRIAMYCIN [Suspect]
     Active Substance: DOXORUBICIN HYDROCHLORIDE
     Indication: NEOADJUVANT THERAPY
     Dosage: 100 MG/M2
     Route: 042
  8. CISPLATIN. [Suspect]
     Active Substance: CISPLATIN
     Indication: OSTEOSARCOMA
     Dosage: 120 MG/M2 (TWO CYCLES)
     Route: 065
  9. ADRIAMYCIN [Suspect]
     Active Substance: DOXORUBICIN HYDROCHLORIDE
     Indication: NEOADJUVANT THERAPY
  10. ADRIAMYCIN [Suspect]
     Active Substance: DOXORUBICIN HYDROCHLORIDE
     Indication: OSTEOSARCOMA
     Dosage: ADRIAMYCIN (100 MG/M2) PLUS VINCRISTINE (ONE DOSE OF 1 MG)
     Route: 042
  11. VINCRISTINE [Suspect]
     Active Substance: VINCRISTINE

REACTIONS (1)
  - Febrile neutropenia [Unknown]
